FAERS Safety Report 8832757 (Version 1)
Quarter: 2012Q4

REPORT INFORMATION
  Report Type: Spontaneous
  Country: US (occurrence: None)
  Receive Date: 20121009
  Receipt Date: 20121009
  Transmission Date: 20130627
  Serious: Yes (Disabling, Other)
  Sender: FDA-Public Use
  Company Number: None

PATIENT
  Age: 72 Year
  Sex: Female
  Weight: 93 kg

DRUGS (3)
  1. ETODOLAC [Suspect]
     Indication: RHEUMATOID ARTHRITIS
     Dates: start: 2011
  2. CALCIUM CARBONATE [Suspect]
     Indication: MINERAL SUPPLEMENTATION
  3. IRON [Suspect]
     Indication: MINERAL SUPPLEMENTATION

REACTIONS (9)
  - Abasia [None]
  - Drug ineffective [None]
  - Pain [None]
  - Pain in extremity [None]
  - Pain in extremity [None]
  - Back pain [None]
  - Musculoskeletal pain [None]
  - Calcium deficiency [None]
  - Iron deficiency [None]
